FAERS Safety Report 8956361 (Version 2)
Quarter: 2013Q1

REPORT INFORMATION
  Report Type: Spontaneous
  Country: IT (occurrence: IT)
  Receive Date: 20121210
  Receipt Date: 20130118
  Transmission Date: 20140127
  Serious: Yes (Hospitalization, Other)
  Sender: FDA-Public Use
  Company Number: IT-NOVOPROD-365289

PATIENT
  Age: 13 Year
  Sex: Female

DRUGS (3)
  1. NOVORAPID [Suspect]
     Indication: TYPE 1 DIABETES MELLITUS
     Dosage: 8+10+8M U/DIE
     Route: 058
     Dates: start: 20121018
  2. LANTUS [Suspect]
     Indication: TYPE 1 DIABETES MELLITUS
     Dosage: 16U/DIE
     Route: 058
     Dates: start: 20121018
  3. AMOXICILLINA [Concomitant]
     Indication: OROPHARYNGEAL PAIN
     Dates: start: 20121019

REACTIONS (5)
  - Abdominal pain [Recovered/Resolved]
  - Malaise [Recovered/Resolved]
  - Dyspnoea [Recovered/Resolved]
  - Hypoglycaemia [Unknown]
  - Hypoglycaemia [Recovered/Resolved]
